FAERS Safety Report 6755063-5 (Version None)
Quarter: 2010Q2

REPORT INFORMATION
  Report Type: 
  Country: None (occurrence: None)
  Receive Date: 20100604
  Receipt Date: 20100526
  Transmission Date: 20101027
  Serious: Yes (Hospitalization)
  Sender: FDA-Public Use
  Company Number: US-BIOGENIDEC-2010BI011315

PATIENT
  Age: 65 Year
  Sex: Female

DRUGS (18)
  1. TYSABRI [Suspect]
     Indication: MULTIPLE SCLEROSIS
     Route: 042
     Dates: start: 20080828
  2. ZANAFLEX [Concomitant]
     Route: 048
  3. SKELAXIN [Concomitant]
     Route: 048
  4. METHADONE HCL [Concomitant]
     Route: 048
  5. SYNTHROID [Concomitant]
     Route: 048
  6. WELLBUTRIN [Concomitant]
     Route: 048
  7. KLONOPIN [Concomitant]
     Route: 048
  8. PROVIGIL [Concomitant]
     Route: 048
  9. NEXIUM [Concomitant]
     Route: 048
  10. LISINOPRIL [Concomitant]
     Route: 048
  11. EVISTA [Concomitant]
     Route: 048
  12. CELEXA [Concomitant]
     Route: 048
  13. STRATTERA [Concomitant]
     Route: 048
  14. ULTRAM [Concomitant]
     Route: 048
  15. PHENERGAN [Concomitant]
     Route: 048
  16. ABILIFY [Concomitant]
     Route: 048
  17. MAGIC MOUTH WASH [Concomitant]
     Route: 048
  18. TYLENOL [Concomitant]
     Route: 048

REACTIONS (3)
  - MEMORY IMPAIRMENT [None]
  - MULTIPLE SCLEROSIS RELAPSE [None]
  - PSYCHOTIC DISORDER [None]
